FAERS Safety Report 10434330 (Version 1)
Quarter: 2014Q3

REPORT INFORMATION
  Report Type: Spontaneous
  Country: JP (occurrence: JP)
  Receive Date: 20140905
  Receipt Date: 20140905
  Transmission Date: 20150326
  Serious: Yes (Hospitalization)
  Sender: FDA-Public Use
  Company Number: JP-EISAI INC-E2090-03498-SPO-JP

PATIENT
  Age: 69 Year
  Sex: Female

DRUGS (2)
  1. TRERIEF [Suspect]
     Active Substance: ZONISAMIDE
     Indication: DRUG EFFECT DECREASED
     Route: 048
     Dates: start: 20140806, end: 20140816
  2. TRERIEF [Suspect]
     Active Substance: ZONISAMIDE
     Indication: PARKINSON^S DISEASE

REACTIONS (1)
  - Hallucination [Recovered/Resolved]

NARRATIVE: CASE EVENT DATE: 20140816
